FAERS Safety Report 5635801-5 (Version None)
Quarter: 2008Q1

REPORT INFORMATION
  Report Type: 
  Country: None (occurrence: None)
  Receive Date: 20080221
  Receipt Date: 20080205
  Transmission Date: 20080703
  Serious: Yes (Other)
  Sender: FDA-Public Use
  Company Number: JPI-P-002924

PATIENT
  Age: 12 Year
  Sex: Male

DRUGS (3)
  1. LUVOX CR [Suspect]
     Indication: OBSESSIVE-COMPULSIVE DISORDER
     Dosage: (50 MG, 1D), ORAL
     Route: 048
  2. METHYLPHENIDATE HCL [Concomitant]
  3. FLUVOXAMINE MALEATE [Concomitant]

REACTIONS (7)
  - AFFECT LABILITY [None]
  - AGITATION [None]
  - ANOREXIA [None]
  - ATTENTION DEFICIT/HYPERACTIVITY DISORDER [None]
  - EMOTIONAL DISORDER [None]
  - NAUSEA [None]
  - TIC [None]
